FAERS Safety Report 4596731-3 (Version None)
Quarter: 2005Q1

REPORT INFORMATION
  Report Type: 
  Country: None (occurrence: None)
  Receive Date: 20050302
  Receipt Date: 20050217
  Transmission Date: 20050727
  Serious: Yes (Disabling, Congenital Anomaly)
  Sender: FDA-Public Use
  Company Number: FR-GLAXOSMITHKLINE-B0371908A

PATIENT
  Age: 1 Day
  Sex: Male

DRUGS (2)
  1. LAMICTAL [Suspect]
     Indication: EPILEPSY
  2. RIVOTRIL [Suspect]
     Indication: EPILEPSY

REACTIONS (4)
  - DRUG EXPOSURE DURING PREGNANCY [None]
  - LIMB MALFORMATION [None]
  - PIERRE ROBIN SYNDROME [None]
  - SOLITARY KIDNEY [None]
